FAERS Safety Report 21400821 (Version 1)
Quarter: 2022Q4

REPORT INFORMATION
  Report Type: Other
  Country: CN (occurrence: None)
  Receive Date: 20221003
  Receipt Date: 20221003
  Transmission Date: 20230112
  Serious: Yes (Other)
  Sender: FDA-Public Use
  Company Number: CN-ROCHE-3187352

PATIENT
  Age: 52 Year
  Sex: Male

DRUGS (2)
  1. TECENTRIQ [Suspect]
     Active Substance: ATEZOLIZUMAB
     Indication: Hepatic cancer
     Dosage: 1200MG/20ML/VIAL, INJECTION
     Route: 041
     Dates: start: 20220627
  2. AVASTIN [Suspect]
     Active Substance: BEVACIZUMAB
     Indication: Hepatic cancer
     Dosage: 100MG(4ML )/VIAL/BOX
     Route: 041
     Dates: start: 20220627

REACTIONS (5)
  - Alpha 1 foetoprotein increased [Not Recovered/Not Resolved]
  - Metastases to lung [Not Recovered/Not Resolved]
  - Hepatic pain [Not Recovered/Not Resolved]
  - Splenomegaly [Not Recovered/Not Resolved]
  - Portal hypertension [Not Recovered/Not Resolved]

NARRATIVE: CASE EVENT DATE: 20220910
